FAERS Safety Report 17291105 (Version 1)
Quarter: 2020Q1

REPORT INFORMATION
  Report Type: Spontaneous
  Country: AU (occurrence: AU)
  Receive Date: 20200121
  Receipt Date: 20200121
  Transmission Date: 20200409
  Serious: Yes (Other)
  Sender: FDA-Public Use
  Company Number: AU-BAYER-2020-004561

PATIENT
  Age: 63 Year
  Sex: Female

DRUGS (4)
  1. AVELOX [Suspect]
     Active Substance: MOXIFLOXACIN HYDROCHLORIDE
     Indication: HELICOBACTER INFECTION
     Dosage: 400 ?G, QD
  2. ESOMEPRAZOLE. [Concomitant]
     Active Substance: ESOMEPRAZOLE MAGNESIUM
     Dosage: 40 ?G, BID
  3. AMOXYCILLIN [AMOXICILLIN] [Concomitant]
     Dosage: 500 ?G, BID
  4. LEVOTHYROXINE. [Concomitant]
     Active Substance: LEVOTHYROXINE
     Dosage: 75 ?G, QD

REACTIONS (5)
  - Pain [None]
  - Dysarthria [None]
  - Head discomfort [None]
  - Dizziness [None]
  - Tremor [None]
